FAERS Safety Report 11181362 (Version 1)
Quarter: 2015Q2

REPORT INFORMATION
  Report Type: Spontaneous
  Country: US (occurrence: US)
  Receive Date: 20150611
  Receipt Date: 20150611
  Transmission Date: 20150821
  Serious: No
  Sender: FDA-Public Use
  Company Number: US-ENDO PHARMACEUTICALS INC.-LORA20140018

PATIENT
  Sex: Female

DRUGS (2)
  1. LORAZEPAM TABLETS 2MG [Suspect]
     Active Substance: LORAZEPAM
     Indication: INSOMNIA
  2. LORAZEPAM TABLETS 2MG [Suspect]
     Active Substance: LORAZEPAM
     Indication: ANXIETY
     Route: 048
     Dates: start: 20140711, end: 20140713

REACTIONS (3)
  - Tremor [Unknown]
  - Drug ineffective [Recovered/Resolved]
  - Nightmare [Unknown]

NARRATIVE: CASE EVENT DATE: 20140711
